FAERS Safety Report 24380552 (Version 1)
Quarter: 2024Q3

REPORT INFORMATION
  Report Type: Spontaneous
  Country: US (occurrence: US)
  Receive Date: 20240930
  Receipt Date: 20240930
  Transmission Date: 20241017
  Serious: No
  Sender: JOHNSON AND JOHNSON
  Company Number: US-JNJFOC-20240966649

PATIENT
  Age: 33 Year
  Sex: Female
  Weight: 67.6 kg

DRUGS (7)
  1. OPSUMIT [Suspect]
     Active Substance: MACITENTAN
     Indication: Product used for unknown indication
     Route: 048
     Dates: end: 202408
  2. REMODULIN [Suspect]
     Active Substance: TREPROSTINIL
     Indication: Pulmonary arterial hypertension
     Route: 042
     Dates: start: 20201109
  3. XARELTO [Concomitant]
     Active Substance: RIVAROXABAN
  4. LASIX [Concomitant]
     Active Substance: FUROSEMIDE
  5. SILDENAFIL CITRATE [Concomitant]
     Active Substance: SILDENAFIL CITRATE
  6. GABAPENTIN [Concomitant]
     Active Substance: GABAPENTIN
  7. COROVAL B [Concomitant]

REACTIONS (2)
  - Headache [Unknown]
  - Nausea [Unknown]
